FAERS Safety Report 24081493 (Version 1)
Quarter: 2024Q3

REPORT INFORMATION
  Report Type: Spontaneous
  Country: US (occurrence: US)
  Receive Date: 20240712
  Receipt Date: 20240712
  Transmission Date: 20241017
  Serious: No
  Sender: SANDOZ
  Company Number: US-SANDOZ-SDZ2023US024194

PATIENT
  Sex: Male

DRUGS (1)
  1. ALBUTEROL SULFATE [Suspect]
     Active Substance: ALBUTEROL SULFATE
     Indication: Asthma
     Dosage: 1-2 PUFF, EVERY 4 HOURS AS NEEDED
     Route: 048

REACTIONS (4)
  - Off label use [Unknown]
  - Product tampering [Unknown]
  - Product packaging quantity issue [Unknown]
  - Product use issue [Unknown]
